FAERS Safety Report 6024447-5 (Version None)
Quarter: 2008Q4

REPORT INFORMATION
  Report Type: 
  Country: None (occurrence: None)
  Receive Date: 20081231
  Receipt Date: 20081218
  Transmission Date: 20090506
  Serious: Yes (Other)
  Sender: FDA-Public Use
  Company Number: PHHY2008BR32517

PATIENT
  Sex: Male
  Weight: 76.4 kg

DRUGS (3)
  1. LEPONEX [Suspect]
     Indication: SCHIZOPHRENIA, PARANOID TYPE
     Dosage: UNK
     Route: 048
  2. LEPONEX [Suspect]
     Dosage: ONE AND HALF TABLET BID
     Route: 048
     Dates: start: 20081202
  3. ZYPREXA [Concomitant]
     Indication: SCHIZOPHRENIA, PARANOID TYPE
     Dosage: TWO TABLETS AT NIGHT
     Route: 048

REACTIONS (7)
  - CONSTIPATION [None]
  - FATIGUE [None]
  - FEELING ABNORMAL [None]
  - GENERAL PHYSICAL CONDITION ABNORMAL [None]
  - SALIVARY HYPERSECRETION [None]
  - SOMNOLENCE [None]
  - WEIGHT INCREASED [None]
